FAERS Safety Report 10403000 (Version 2)
Quarter: 2014Q3

REPORT INFORMATION
  Report Type: Report from Study
  Country: DE (occurrence: DE)
  Receive Date: 20140822
  Receipt Date: 20140828
  Transmission Date: 20150326
  Serious: Yes (Death)
  Sender: FDA-Public Use
  Company Number: DE-ABBVIE-14P-062-1275190-00

PATIENT
  Age: 85 Year
  Sex: Male

DRUGS (2)
  1. ACETYLSALICYLIC ACID [Concomitant]
     Active Substance: ASPIRIN
     Indication: PRODUCT USED FOR UNKNOWN INDICATION
  2. LEUPRORELIN (LEUPRORELIN ACETATE) [Suspect]
     Active Substance: LEUPROLIDE ACETATE
     Indication: PROSTATE CANCER
     Dates: start: 20120926, end: 20140306

REACTIONS (1)
  - Cardiovascular disorder [Fatal]

NARRATIVE: CASE EVENT DATE: 20140702
